FAERS Safety Report 5920569-5 (Version None)
Quarter: 2008Q4

REPORT INFORMATION
  Report Type: 
  Country: None (occurrence: None)
  Receive Date: 20081016
  Receipt Date: 20081006
  Transmission Date: 20090506
  Serious: Yes (Hospitalization)
  Sender: FDA-Public Use
  Company Number: PHHO2006FR20489

PATIENT
  Sex: Female

DRUGS (3)
  1. NEORAL [Suspect]
     Indication: RENAL TRANSPLANT
     Dosage: 300 MG DAILY
     Route: 048
     Dates: start: 20060905
  2. SOLUPRED [Concomitant]
     Indication: RENAL TRANSPLANT
  3. CELLCEPT [Concomitant]
     Indication: RENAL TRANSPLANT

REACTIONS (8)
  - CATHETER RELATED COMPLICATION [None]
  - NEPHROSTOMY [None]
  - OBSTRUCTIVE UROPATHY [None]
  - RENAL FAILURE ACUTE [None]
  - RENAL TUBULAR ATROPHY [None]
  - THERAPEUTIC AGENT TOXICITY [None]
  - URETERIC OPERATION [None]
  - URETERIC STENOSIS [None]
